FAERS Safety Report 9678668 (Version 1)
Quarter: 2013Q4

REPORT INFORMATION
  Report Type: Spontaneous
  Country: US (occurrence: US)
  Receive Date: 20131108
  Receipt Date: 20131108
  Transmission Date: 20140711
  Serious: Yes (Hospitalization, Other)
  Sender: FDA-Public Use
  Company Number: US-SAVIENT-2013S1000113

PATIENT
  Age: 70 Year
  Sex: Female
  Weight: 100.33 kg

DRUGS (7)
  1. KRYSTEXXA [Suspect]
     Indication: GOUT
     Route: 042
     Dates: start: 20130815, end: 20130815
  2. KRYSTEXXA [Suspect]
     Route: 042
     Dates: start: 2013, end: 2013
  3. KRYSTEXXA [Suspect]
     Route: 042
     Dates: start: 2013, end: 2013
  4. KRYSTEXXA [Suspect]
     Route: 042
     Dates: start: 2013, end: 2013
  5. KRYSTEXXA [Suspect]
     Route: 042
     Dates: start: 20130927, end: 20130927
  6. INSULIN [Concomitant]
     Indication: DIABETES MELLITUS
     Route: 058
  7. ULORIC [Concomitant]
     Indication: ALLERGY PROPHYLAXIS

REACTIONS (6)
  - Renal failure [Not Recovered/Not Resolved]
  - Feeling abnormal [Not Recovered/Not Resolved]
  - Abasia [Not Recovered/Not Resolved]
  - Pain [Not Recovered/Not Resolved]
  - Anuria [Not Recovered/Not Resolved]
  - Adrenal disorder [Not Recovered/Not Resolved]
